FAERS Safety Report 12099501 (Version 1)
Quarter: 2016Q1

REPORT INFORMATION
  Report Type: Spontaneous
  Country: US (occurrence: None)
  Receive Date: 20160219
  Receipt Date: 20160219
  Transmission Date: 20160526
  Serious: Yes (Other)
  Sender: FDA-Public Use
  Company Number: None

PATIENT
  Sex: Female

DRUGS (1)
  1. HUMIRA [Suspect]
     Active Substance: ADALIMUMAB
     Indication: CROHN^S DISEASE
     Dosage: 40MG/0.8 ML EVERY 14 DAYS, SUBCUTANEOUSLY
     Route: 058
     Dates: start: 20150825, end: 20151207

REACTIONS (2)
  - Neoplasm malignant [None]
  - Haematoma [None]
